FAERS Safety Report 4376768-X (Version None)
Quarter: 2004Q2

REPORT INFORMATION
  Report Type: 
  Country: None (occurrence: None)
  Receive Date: 20040609
  Receipt Date: 20040303
  Transmission Date: 20050107
  Serious: Yes (Hospitalization)
  Sender: FDA-Public Use
  Company Number: 2004201850US

PATIENT
  Age: 79 Year
  Sex: Male

DRUGS (1)
  1. BEXTRA [Suspect]
     Indication: PAIN
     Dosage: 10 MG, ORAL
     Route: 048
     Dates: start: 20020101

REACTIONS (2)
  - DIARRHOEA [None]
  - VOMITING [None]
